FAERS Safety Report 25588383 (Version 1)
Quarter: 2025Q3

REPORT INFORMATION
  Report Type: Spontaneous
  Country: EU (occurrence: EU)
  Receive Date: 20250722
  Receipt Date: 20250722
  Transmission Date: 20251020
  Serious: Yes (Life-Threatening, Hospitalization)
  Sender: JAZZ
  Company Number: EU-JAZZ PHARMACEUTICALS-2025-PL-014652

PATIENT
  Age: 73 Year

DRUGS (1)
  1. VYXEOS [Suspect]
     Active Substance: CYTARABINE\DAUNORUBICIN
     Indication: Acute myeloid leukaemia

REACTIONS (3)
  - Sepsis [Unknown]
  - Klebsiella infection [Unknown]
  - Nasal herpes [Unknown]
